FAERS Safety Report 26092187 (Version 1)
Quarter: 2025Q4

REPORT INFORMATION
  Report Type: Report from Study
  Country: CA (occurrence: CA)
  Receive Date: 20251126
  Receipt Date: 20251126
  Transmission Date: 20260118
  Serious: Yes (Other)
  Sender: CELLTRION
  Company Number: CA-CELLTRION INC.-2025CA042330

PATIENT

DRUGS (32)
  1. OMALIZUMAB [Suspect]
     Active Substance: OMALIZUMAB
     Indication: Asthma
     Dosage: 300 MILLIGRAM, 1 EVERY 2 WEEKS
     Route: 058
  2. OMALIZUMAB [Suspect]
     Active Substance: OMALIZUMAB
     Dosage: 300 MILLIGRAM, 1 EVERY 2 WEEKS
     Route: 058
  3. OMALIZUMAB [Suspect]
     Active Substance: OMALIZUMAB
     Dosage: 300 MILLIGRAM, 1 EVERY 2 WEEKS
     Route: 058
  4. OMALIZUMAB [Suspect]
     Active Substance: OMALIZUMAB
     Dosage: 300 MILLIGRAM, 1 EVERY 2 WEEKS
     Route: 058
  5. OMALIZUMAB [Suspect]
     Active Substance: OMALIZUMAB
     Dosage: 300 MILLIGRAM, 1 EVERY 2 WEEKS
     Route: 058
  6. AMLODIPINE [Concomitant]
     Active Substance: AMLODIPINE BESYLATE
     Indication: Product used for unknown indication
     Route: 065
  7. BACLOFEN [Concomitant]
     Active Substance: BACLOFEN
     Indication: Product used for unknown indication
     Route: 065
  8. CANDESARTAN [Concomitant]
     Active Substance: CANDESARTAN
     Indication: Product used for unknown indication
     Route: 065
  9. LYRICA [Concomitant]
     Active Substance: PREGABALIN
     Indication: Product used for unknown indication
     Route: 065
  10. METFORMIN [Concomitant]
     Active Substance: METFORMIN HYDROCHLORIDE
     Indication: Product used for unknown indication
     Dosage: 1 EVERY 1 DAYS
     Route: 065
  11. METFORMIN [Concomitant]
     Active Substance: METFORMIN HYDROCHLORIDE
     Dosage: 2 EVERY 1 DAYS
     Route: 065
  12. NAPROXEN [Concomitant]
     Active Substance: NAPROXEN
     Indication: Product used for unknown indication
     Route: 065
  13. OMALIZUMAB [Suspect]
     Active Substance: OMALIZUMAB
     Indication: Asthma
     Route: 058
  14. OMALIZUMAB [Suspect]
     Active Substance: OMALIZUMAB
     Dosage: 300 MILLIGRAM, EVERY 2 WEEKS
     Route: 058
  15. OMALIZUMAB [Suspect]
     Active Substance: OMALIZUMAB
     Dosage: 300 MILLIGRAM, EVERY 2 WEEKS
     Route: 058
  16. OMALIZUMAB [Suspect]
     Active Substance: OMALIZUMAB
     Dosage: 300 MILLIGRAM, EVERY 2 WEEKS
     Route: 058
  17. OMALIZUMAB [Suspect]
     Active Substance: OMALIZUMAB
     Dosage: 300 MILLIGRAM, EVERY 2 WEEKS
     Route: 058
  18. OMALIZUMAB [Suspect]
     Active Substance: OMALIZUMAB
     Dosage: 300 MILLIGRAM, EVERY 2 WEEKS
     Route: 058
  19. OMALIZUMAB [Suspect]
     Active Substance: OMALIZUMAB
     Dosage: 300 MILLIGRAM, EVERY 2 WEEKS
     Route: 058
  20. OMALIZUMAB [Suspect]
     Active Substance: OMALIZUMAB
     Dosage: 300 MILLIGRAM, EVERY 2 WEEKS
     Route: 058
  21. OMALIZUMAB [Suspect]
     Active Substance: OMALIZUMAB
     Dosage: 300 MILLIGRAM, EVERY 2 WEEKS
     Route: 058
  22. OMALIZUMAB [Suspect]
     Active Substance: OMALIZUMAB
     Dosage: 300 MILLIGRAM, EVERY 2 WEEKS
     Route: 058
  23. PANTOPRAZOLE [Concomitant]
     Active Substance: PANTOPRAZOLE
     Indication: Product used for unknown indication
     Route: 065
  24. PREGABALIN [Concomitant]
     Active Substance: PREGABALIN
     Indication: Product used for unknown indication
     Route: 065
  25. SIMVASTATIN [Concomitant]
     Active Substance: SIMVASTATIN
     Indication: Product used for unknown indication
     Route: 065
  26. DULOXETINE [Concomitant]
     Active Substance: DULOXETINE
     Indication: Product used for unknown indication
  27. VENTOLIN [Concomitant]
     Active Substance: ALBUTEROL SULFATE
     Indication: Product used for unknown indication
     Dosage: 2 DOSAGE FORMS
  28. VENTOLIN [Concomitant]
     Active Substance: ALBUTEROL SULFATE
     Indication: Product used for unknown indication
     Dosage: 3 DOSAGE FORM
  29. VENTOLIN [Concomitant]
     Active Substance: ALBUTEROL SULFATE
     Dosage: UNK
  30. VENTOLIN [Concomitant]
     Active Substance: ALBUTEROL SULFATE
     Dosage: 3 DOSAGE FORMS, 1 EVERY 1 DAYS
  31. VENTOLIN [Concomitant]
     Active Substance: ALBUTEROL SULFATE
     Dosage: UNK
     Route: 065
  32. ZENHALE [Suspect]
     Active Substance: FORMOTEROL FUMARATE\MOMETASONE FUROATE
     Indication: Product used for unknown indication
     Route: 065

REACTIONS (19)
  - Aphonia [Not Recovered/Not Resolved]
  - Asthma [Not Recovered/Not Resolved]
  - Blood pressure increased [Not Recovered/Not Resolved]
  - Dysphonia [Not Recovered/Not Resolved]
  - Dyspnoea [Not Recovered/Not Resolved]
  - Forced expiratory volume decreased [Not Recovered/Not Resolved]
  - Heart rate increased [Not Recovered/Not Resolved]
  - Insomnia [Not Recovered/Not Resolved]
  - Middle insomnia [Not Recovered/Not Resolved]
  - Nasal congestion [Not Recovered/Not Resolved]
  - Nasopharyngitis [Not Recovered/Not Resolved]
  - Obesity [Not Recovered/Not Resolved]
  - Obstructive airways disorder [Not Recovered/Not Resolved]
  - Oropharyngeal pain [Not Recovered/Not Resolved]
  - Upper respiratory tract infection [Not Recovered/Not Resolved]
  - Weight decreased [Not Recovered/Not Resolved]
  - Cough [Not Recovered/Not Resolved]
  - Dizziness [Not Recovered/Not Resolved]
  - Inappropriate schedule of product administration [Not Recovered/Not Resolved]
